FAERS Safety Report 7604010-2 (Version None)
Quarter: 2011Q3

REPORT INFORMATION
  Report Type: 
  Country: None (occurrence: None)
  Receive Date: 20110712
  Receipt Date: 20110701
  Transmission Date: 20111222
  Serious: Yes (Other)
  Sender: FDA-Public Use
  Company Number: FR-JNJFOC-20110702824

PATIENT
  Sex: Female

DRUGS (12)
  1. BRICANYL [Concomitant]
  2. NASACORT [Concomitant]
  3. IODIXANOL [Concomitant]
     Dates: start: 20110516, end: 20110516
  4. ANAFRANIL [Interacting]
     Indication: BACK PAIN
     Route: 042
     Dates: start: 20110517, end: 20110518
  5. TRAMADOL HCL [Suspect]
     Indication: BACK PAIN
     Route: 048
     Dates: start: 20110101
  6. HYDROCORTANCYL [Concomitant]
     Indication: SCIATICA
     Dates: start: 20110516, end: 20110516
  7. AMITRIPTYLINE HCL [Concomitant]
     Indication: SCIATICA
     Dates: start: 20110514, end: 20110515
  8. DESLORATADINE [Concomitant]
  9. CLONAZEPAM [Concomitant]
  10. DEXCHLORPHENIRAMINE MALEATE [Concomitant]
     Indication: URTICARIA
     Dates: start: 20110517
  11. ACETAMINOPHEN AND TRAMADOL HCL [Interacting]
     Indication: BACK PAIN
     Route: 048
     Dates: start: 20110101
  12. AMITRIPTYLINE HCL [Concomitant]
     Dates: start: 20110516, end: 20110517

REACTIONS (4)
  - SEROTONIN SYNDROME [None]
  - DRUG INTERACTION [None]
  - AGITATION [None]
  - SLEEP DISORDER [None]
